FAERS Safety Report 4678101-2 (Version None)
Quarter: 2005Q2

REPORT INFORMATION
  Report Type: 
  Country: None (occurrence: None)
  Receive Date: 20050527
  Receipt Date: 20050517
  Transmission Date: 20051028
  Serious: Yes (Death)
  Sender: FDA-Public Use
  Company Number: 11167

PATIENT
  Sex: Female

DRUGS (4)
  1. DOXORUBICIN HCL [Suspect]
     Indication: ENDOMETRIAL CANCER
     Dosage: 45 MG/M2 OTH
     Route: 050
  2. CISPLATIN [Suspect]
     Indication: ENDOMETRIAL CANCER
     Dosage: 50 MGM2 OTH
     Route: 050
  3. PACLITAXEL [Suspect]
     Indication: ENDOMETRIAL CANCER
     Dosage: 160 MG/M2 OTH
     Route: 050
  4. FILGRASTIM [Suspect]
     Indication: ENDOMETRIAL CANCER
     Dosage: 5 MCG/KG OTH SC
     Route: 058

REACTIONS (1)
  - HAEMOLYTIC URAEMIC SYNDROME [None]
